FAERS Safety Report 6727552-0 (Version None)
Quarter: 2010Q2

REPORT INFORMATION
  Report Type: 
  Country: None (occurrence: None)
  Receive Date: 20100517
  Receipt Date: 20100507
  Transmission Date: 20101027
  Serious: Yes (Other)
  Sender: FDA-Public Use
  Company Number: PHHY2010DE29826

PATIENT
  Sex: Female

DRUGS (1)
  1. FEMARA [Suspect]
     Indication: BREAST CANCER
     Dosage: 1 X DAILY
     Route: 048
     Dates: start: 20080416

REACTIONS (3)
  - BONE DENSITY ABNORMAL [None]
  - BONE PAIN [None]
  - SPONDYLOLISTHESIS [None]
